FAERS Safety Report 6423960-6 (Version None)
Quarter: 2009Q4

REPORT INFORMATION
  Report Type: 
  Country: None (occurrence: None)
  Receive Date: 20091102
  Receipt Date: 20091020
  Transmission Date: 20100525
  Serious: Yes (Other)
  Sender: FDA-Public Use
  Company Number: PHEH2009US14286

PATIENT
  Sex: Female
  Weight: 92.063 kg

DRUGS (22)
  1. DIOVAN [Suspect]
     Indication: HYPERTENSION
     Dosage: 80 MG, QD
     Route: 048
     Dates: start: 20091008, end: 20091019
  2. DIOVAN [Suspect]
     Dosage: 40 MG, QD
     Route: 048
     Dates: start: 20091019
  3. GLUCOPHAGE [Concomitant]
     Dosage: 1000 MG, BID
  4. OXYGEN [Concomitant]
     Dosage: 4 L, CONT
     Route: 045
  5. ALBUTEROL [Concomitant]
     Dosage: UNK, UNK
  6. SPIRIVA [Concomitant]
     Dosage: UNK, UNK
  7. SOMA [Concomitant]
     Dosage: UNK, UNK
  8. TRICOR [Concomitant]
     Dosage: UNK, UNK
  9. FUROSEMIDE [Concomitant]
     Dosage: 40 MG UNK
  10. LANTUS [Concomitant]
     Dosage: UNK, UNK
  11. POTASSIUM CHLORIDE [Concomitant]
  12. ALLOPURINOL [Concomitant]
     Dosage: UNK, UNK
  13. LIPITOR [Concomitant]
     Dosage: 80 MG, UNK
  14. GABAPENTIN [Concomitant]
     Dosage: 200 MG, BID
  15. DILANTIN                                /AUS/ [Concomitant]
     Dosage: 100 MG, 2 - 3 TABLETS, PRN
  16. CELEXA [Concomitant]
     Dosage: UNK, UNK
  17. VITAMIN B-12 [Concomitant]
     Dosage: 1000 MG, QMO
  18. PREMARIN [Concomitant]
     Dosage: 0.3 MG, UNK
  19. PAROXETINE [Concomitant]
     Dosage: UNK, UNK
  20. PLAVIX [Concomitant]
     Dosage: UNK, UNK
  21. LEVOTHYROXINE SODIUM [Concomitant]
     Dosage: UNK, UNK
  22. ZEGERID [Concomitant]

REACTIONS (2)
  - BLOOD PRESSURE DECREASED [None]
  - TOOTH ABSCESS [None]
